FAERS Safety Report 6847316-7 (Version None)
Quarter: 2010Q3

REPORT INFORMATION
  Report Type: 
  Country: None (occurrence: None)
  Receive Date: 20100713
  Receipt Date: 20100611
  Transmission Date: 20110219
  Serious: Yes (Death)
  Sender: FDA-Public Use
  Company Number: JHP201000187

PATIENT
  Age: 3 Year
  Sex: Female

DRUGS (4)
  1. DANTRIUM [Suspect]
     Indication: DYSTONIA
     Dosage: ORAL
     Route: 048
  2. DANTRIUM [Suspect]
     Indication: EPILEPSY
     Dosage: ORAL
     Route: 048
  3. DEPAKENE [Concomitant]
  4. CHLORPROMAZINE HCL [Concomitant]

REACTIONS (3)
  - DEHYDRATION [None]
  - NEUROLEPTIC MALIGNANT SYNDROME [None]
  - VOMITING [None]
